FAERS Safety Report 7641403-1 (Version None)
Quarter: 2011Q3

REPORT INFORMATION
  Report Type: 
  Country: None (occurrence: None)
  Receive Date: 20110728
  Receipt Date: 20110725
  Transmission Date: 20111222
  Serious: Yes (Other)
  Sender: FDA-Public Use
  Company Number: BR-PFIZER INC-2011169358

PATIENT
  Age: 53 Year
  Sex: Female
  Weight: 80 kg

DRUGS (2)
  1. PRESS PLUS [Concomitant]
     Indication: BLOOD PRESSURE INCREASED
     Dosage: [AMLODIPINE BESILATE 5MG] / [BENAZEPRIL HYDROCHLORIDE 10MG], ONCE DAILY
  2. VARENICLINE TARTRATE [Suspect]
     Indication: SMOKING CESSATION THERAPY
     Dosage: UNK
     Route: 048
     Dates: start: 20110722, end: 20110723

REACTIONS (4)
  - URINARY INCONTINENCE [None]
  - MICTURITION URGENCY [None]
  - BLOOD PRESSURE INCREASED [None]
  - DYSPNOEA [None]
